FAERS Safety Report 7899042-3 (Version None)
Quarter: 2011Q4

REPORT INFORMATION
  Report Type: 
  Country: None (occurrence: None)
  Receive Date: 20111107
  Receipt Date: 20111020
  Transmission Date: 20120403
  Serious: Yes (Other)
  Sender: FDA-Public Use
  Company Number: US-ASTRAZENECA-2011SE63688

PATIENT
  Sex: Female

DRUGS (21)
  1. TOPROL-XL [Suspect]
     Route: 048
  2. LISINOPRIL [Suspect]
     Route: 048
  3. ROBAXIN [Concomitant]
  4. CORTIZONE EYEDROPS [Concomitant]
  5. CALCIUM 600+D [Concomitant]
  6. PRILOSEC [Suspect]
     Route: 048
  7. SIMVASTATEN [Concomitant]
  8. LAMICTAL [Concomitant]
  9. CLONAZEPAM [Concomitant]
  10. IBUPROFEN (ADVIL) [Concomitant]
  11. VITAMIN B COMPLEX CAP [Concomitant]
  12. WELLBUTRIN SR [Concomitant]
  13. NORVASC [Concomitant]
  14. MURO 128 [Concomitant]
  15. XANAX [Concomitant]
  16. TRAMADOL HCL [Concomitant]
  17. EFFEXOR [Concomitant]
     Dosage: 2 DF AM+ 2 DF PM
  18. SEROQUEL [Suspect]
     Route: 048
  19. METOCLOPRAMIDE [Concomitant]
  20. IMITREX [Concomitant]
  21. MULTI-VITAMIN [Concomitant]

REACTIONS (13)
  - INTERVERTEBRAL DISC DISORDER [None]
  - CHRONIC OBSTRUCTIVE PULMONARY DISEASE [None]
  - EATING DISORDER [None]
  - OBSESSIVE-COMPULSIVE DISORDER [None]
  - DEPRESSION [None]
  - HYPERTENSION [None]
  - BLOOD CHOLESTEROL INCREASED [None]
  - BASAL CELL CARCINOMA [None]
  - SQUAMOUS CELL CARCINOMA [None]
  - ANXIETY [None]
  - BIPOLAR II DISORDER [None]
  - MIGRAINE [None]
  - CORNEAL DYSTROPHY [None]
